FAERS Safety Report 9444682 (Version 1)
Quarter: 2013Q3

REPORT INFORMATION
  Report Type: Spontaneous
  Country: IL (occurrence: IL)
  Receive Date: 20130807
  Receipt Date: 20130807
  Transmission Date: 20140515
  Serious: Yes (Other)
  Sender: FDA-Public Use
  Company Number: IL-PFIZER INC-2013226936

PATIENT
  Age: 61 Year
  Sex: Female

DRUGS (3)
  1. CHAMPIX [Suspect]
     Dosage: 1 MG, DAILY
     Route: 048
     Dates: start: 20130710
  2. METFORMIN HYDROCHLORIDE [Concomitant]
     Indication: DIABETES MELLITUS
     Dosage: UNK
  3. AUGMENTIN [Concomitant]
     Dosage: 875 MG, 2X/DAY

REACTIONS (5)
  - Urinary tract infection [Unknown]
  - Abdominal distension [Recovered/Resolved]
  - Somnolence [Recovered/Resolved]
  - Fatigue [Recovered/Resolved]
  - Nausea [Recovered/Resolved]
